FAERS Safety Report 8809990 (Version 1)
Quarter: 2012Q4

REPORT INFORMATION
  Report Type: 
  Country: US (occurrence: US)
  Receive Date: 20120926
  Receipt Date: 20120926
  Transmission Date: 20130627
  Serious: Yes (Other)
  Sender: FDA-Public Use
  Company Number: US-GLAXOSMITHKLINE-A0995103A

PATIENT
  Age: 24 Year
  Sex: Female

DRUGS (1)
  1. ALLI [Suspect]
     Route: 048
     Dates: start: 20120126

REACTIONS (4)
  - Haematochezia [Recovered/Resolved]
  - Steatorrhoea [Recovered/Resolved]
  - Abdominal pain [Recovered/Resolved]
  - Expired drug administered [Unknown]
